FAERS Safety Report 4300111-5 (Version None)
Quarter: 2004Q1

REPORT INFORMATION
  Report Type: 
  Country: None (occurrence: None)
  Receive Date: 20040218
  Receipt Date: 20040203
  Transmission Date: 20041129
  Serious: Yes (Death, Hospitalization, Other)
  Sender: FDA-Public Use
  Company Number: GB-JNJFOC-20040100564

PATIENT
  Age: 44 Year
  Sex: Female

DRUGS (4)
  1. DURAGESIC [Suspect]
     Indication: CANCER PAIN
     Dosage: 175 UG/HR; TRANSDERMAL; 225 UG/HR; TRANSDERMAL
     Route: 062
  2. FENTANYL [Suspect]
     Indication: PAIN
     Dosage: 200 UG/HR; SUBCUTANEOUS
     Route: 058
  3. DIAZEPAM [Concomitant]
  4. MORPHINE (SOLUTION) MORPHINE [Concomitant]

REACTIONS (9)
  - AGITATION [None]
  - BLOOD UREA INCREASED [None]
  - BRONCHOPNEUMONIA [None]
  - CONFUSIONAL STATE [None]
  - GENERAL PHYSICAL HEALTH DETERIORATION [None]
  - METASTASES TO BONE [None]
  - METASTASES TO LIVER [None]
  - RESPIRATORY RATE DECREASED [None]
  - SOMNOLENCE [None]
